FAERS Safety Report 14763693 (Version 1)
Quarter: 2018Q2

REPORT INFORMATION
  Report Type: Spontaneous
  Country: BR (occurrence: BR)
  Receive Date: 20180416
  Receipt Date: 20180416
  Transmission Date: 20180711
  Serious: Yes (Other)
  Sender: FDA-Public Use
  Company Number: PHHY2018BR059664

PATIENT
  Sex: Female
  Weight: 50 kg

DRUGS (8)
  1. BROMAZEPAM [Suspect]
     Active Substance: BROMAZEPAM
     Indication: PRODUCT USED FOR UNKNOWN INDICATION
     Dosage: UNK
     Route: 065
  2. OLCADIL [Suspect]
     Active Substance: CLOXAZOLAM
     Dosage: 0.5 DF, (CONC. 4 MG) SPLIT IN HALF
     Route: 048
  3. OLCADIL [Suspect]
     Active Substance: CLOXAZOLAM
     Indication: ANXIETY
     Dosage: 1 DF, QD (CONC. 2 MG, ONE TABLET AT NIGHT AND WHEN NEEDED USED IN DAY TOO)
     Route: 048
  4. CLOXAZOLAM [Suspect]
     Active Substance: CLOXAZOLAM
     Indication: BLOOD PRESSURE INCREASED
  5. RIVOTRIL [Suspect]
     Active Substance: CLONAZEPAM
     Indication: PRODUCT USED FOR UNKNOWN INDICATION
     Dosage: UNK
     Route: 065
  6. CLOXAZOLAM [Suspect]
     Active Substance: CLOXAZOLAM
     Indication: SLEEP DISORDER
  7. CLOXAZOLAM [Suspect]
     Active Substance: CLOXAZOLAM
     Indication: ANXIETY
     Dosage: UNK
     Route: 048
  8. ALPRAZOLAM. [Suspect]
     Active Substance: ALPRAZOLAM
     Indication: PRODUCT USED FOR UNKNOWN INDICATION
     Dosage: UNK
     Route: 065

REACTIONS (11)
  - Drug intolerance [Recovered/Resolved]
  - Nausea [Recovered/Resolved]
  - Drug ineffective [Recovered/Resolved]
  - Panic disorder [Recovered/Resolved]
  - Gait disturbance [Unknown]
  - Syringomyelia [Unknown]
  - Malaise [Recovered/Resolved]
  - Wrong technique in product usage process [Recovered/Resolved]
  - Drug dependence [Recovered/Resolved]
  - Coordination abnormal [Recovered/Resolved]
  - Sleep disorder [Recovered/Resolved]
